FAERS Safety Report 7539068-2 (Version None)
Quarter: 2011Q2

REPORT INFORMATION
  Report Type: 
  Country: None (occurrence: None)
  Receive Date: 20110610
  Receipt Date: 20020221
  Transmission Date: 20111010
  Serious: Yes (Death, Hospitalization)
  Sender: FDA-Public Use
  Company Number: PHBS2001CA09153

PATIENT
  Sex: Female
  Weight: 87 kg

DRUGS (9)
  1. TOPAMAX [Concomitant]
     Dosage: 50 MG, BID
  2. ALESSE [Suspect]
     Indication: ORAL CONTRACEPTION
     Dates: start: 20010301
  3. SEROQUEL [Concomitant]
     Dosage: 325 MG, QD
  4. EFFEXOR [Concomitant]
     Dosage: 75 MG, QHS
  5. B12 ^RECIP^ [Concomitant]
     Dosage: UNK, QMO
  6. LORAZEPAM [Concomitant]
  7. CLOZAPINE [Suspect]
     Indication: SCHIZOPHRENIA
     Dosage: 400 MG, QHS
     Route: 048
     Dates: start: 19990804
  8. HALDOL [Concomitant]
  9. SUPPER [Concomitant]
     Dosage: 112.5 MG, QD

REACTIONS (5)
  - DYSPNOEA [None]
  - ASTHENIA [None]
  - HEART RATE INCREASED [None]
  - OEDEMA PERIPHERAL [None]
  - PULMONARY EMBOLISM [None]
